FAERS Safety Report 20072995 (Version 1)
Quarter: 2021Q4

REPORT INFORMATION
  Report Type: Report from Study
  Country: US (occurrence: US)
  Receive Date: 20211116
  Receipt Date: 20211116
  Transmission Date: 20220303
  Serious: No
  Sender: FDA-Public Use
  Company Number: US-BIOVITRUM-2021US10786

PATIENT
  Sex: Male
  Weight: 9 kg

DRUGS (7)
  1. SYNAGIS [Suspect]
     Active Substance: PALIVIZUMAB
     Indication: Retinopathy of prematurity
     Route: 030
  2. SYNAGIS [Suspect]
     Active Substance: PALIVIZUMAB
     Indication: Pulmonary hypertension
     Dates: start: 20211020
  3. SYNAGIS [Suspect]
     Active Substance: PALIVIZUMAB
     Indication: Constipation
  4. SYNAGIS [Suspect]
     Active Substance: PALIVIZUMAB
     Indication: Premature baby
  5. SYNAGIS [Suspect]
     Active Substance: PALIVIZUMAB
     Indication: Chronic respiratory disease
  6. SYNAGIS [Suspect]
     Active Substance: PALIVIZUMAB
     Indication: Anaemia neonatal
  7. SYNAGIS [Suspect]
     Active Substance: PALIVIZUMAB
     Indication: Atrial septal defect

REACTIONS (1)
  - Pyrexia [Unknown]
